FAERS Safety Report 7360087-3 (Version None)
Quarter: 2011Q1

REPORT INFORMATION
  Report Type: 
  Country: None (occurrence: None)
  Receive Date: 20110318
  Receipt Date: 20110308
  Transmission Date: 20110831
  Serious: Yes (Hospitalization, Other)
  Sender: FDA-Public Use
  Company Number: AT-BIOGENIDEC-2010BI041689

PATIENT
  Age: 37 Year
  Sex: Female

DRUGS (8)
  1. TYSABRI [Suspect]
     Indication: MULTIPLE SCLEROSIS
     Route: 042
     Dates: start: 20070601, end: 20101101
  2. FLUCTINE [Concomitant]
     Dates: start: 20090901
  3. TRITTICO [Concomitant]
     Indication: DEPRESSION
  4. FLUCTINE [Concomitant]
     Indication: DEPRESSION
  5. WELLBUTRIN [Concomitant]
     Indication: DEPRESSION
     Dates: start: 20100901
  6. TRITTICO [Concomitant]
     Dates: start: 20100901
  7. CORTICOSTEROIDS [Concomitant]
  8. MIRTABENE [Concomitant]
     Indication: DEPRESSION
     Dates: start: 20090901

REACTIONS (4)
  - PROGRESSIVE MULTIFOCAL LEUKOENCEPHALOPATHY [None]
  - VISUAL IMPAIRMENT [None]
  - HEMIANOPIA HOMONYMOUS [None]
  - DEVICE RELATED SEPSIS [None]
